FAERS Safety Report 14908074 (Version 1)
Quarter: 2018Q2

REPORT INFORMATION
  Report Type: Spontaneous
  Country: US (occurrence: US)
  Receive Date: 20180430
  Receipt Date: 20180430
  Transmission Date: 20180711
  Serious: Yes (Disabling)
  Sender: FDA-Public Use
  Company Number: None

PATIENT
  Age: 81 Year
  Sex: Male

DRUGS (4)
  1. LIPITOR [Concomitant]
     Active Substance: ATORVASTATIN CALCIUM
  2. ASA [Concomitant]
     Active Substance: ASPIRIN
  3. XARELTO [Suspect]
     Active Substance: RIVAROXABAN
     Indication: ATRIAL FIBRILLATION
     Dosage: ?          QUANTITY:1 TABLET(S);OTHER FREQUENCY:EVENING MEAL;?
     Route: 048
     Dates: start: 20180106, end: 20180412
  4. ALLEGRA [Concomitant]
     Active Substance: FEXOFENADINE HYDROCHLORIDE

REACTIONS (5)
  - Fall [None]
  - Dizziness [None]
  - Blood glucose decreased [None]
  - Limb discomfort [None]
  - Gait disturbance [None]

NARRATIVE: CASE EVENT DATE: 20180112
